FAERS Safety Report 21588720 (Version 1)
Quarter: 2022Q4

REPORT INFORMATION
  Report Type: Report from Study
  Country: US (occurrence: US)
  Receive Date: 20221114
  Receipt Date: 20221114
  Transmission Date: 20230112
  Serious: No
  Sender: FDA-Public Use
  Company Number: US-ABBVIE-4155205

PATIENT
  Sex: Female

DRUGS (4)
  1. HUMIRA [Suspect]
     Active Substance: ADALIMUMAB
     Indication: Psoriatic arthropathy
     Route: 058
  2. HUMIRA [Suspect]
     Active Substance: ADALIMUMAB
     Indication: Psoriasis
  3. Tramcinolon Acetonide Cream [Concomitant]
     Indication: Product used for unknown indication
  4. Johnson + Johnson covid-19 vaccine [Concomitant]
     Indication: COVID-19 immunisation

REACTIONS (1)
  - Injection site rash [Unknown]
